FAERS Safety Report 8333858-4 (Version None)
Quarter: 2012Q2

REPORT INFORMATION
  Report Type: 
  Country: None (occurrence: None)
  Receive Date: 20120503
  Receipt Date: 20120426
  Transmission Date: 20120825
  Serious: Yes (Death, Hospitalization, Other)
  Sender: FDA-Public Use
  Company Number: US-PFIZER INC-2012083723

PATIENT
  Sex: Male
  Weight: 112 kg

DRUGS (3)
  1. WARFARIN SODIUM [Concomitant]
     Indication: THROMBOSIS
     Dosage: UNK
  2. GLIPIZIDE [Concomitant]
     Indication: DIABETES MELLITUS
     Dosage: UNK
  3. REVATIO [Suspect]
     Indication: PULMONARY HYPERTENSION
     Dosage: FOUR TABLETS OF 20MG, 3X/DAY
     Route: 048

REACTIONS (2)
  - RENAL FAILURE [None]
  - ENDOCARDITIS [None]
